FAERS Safety Report 20169612 (Version 4)
Quarter: 2024Q3

REPORT INFORMATION
  Report Type: Report from Study
  Country: CA (occurrence: CA)
  Receive Date: 20211210
  Receipt Date: 20240814
  Transmission Date: 20241017
  Serious: Yes (Other)
  Sender: CURRAX PHARMACEUTICALS
  Company Number: CA-BAUSCH-BL-2021-033400

PATIENT
  Sex: Female
  Weight: 137.42 kg

DRUGS (30)
  1. CONTRAVE [Suspect]
     Active Substance: BUPROPION HYDROCHLORIDE\NALTREXONE HYDROCHLORIDE
     Indication: Weight control
     Dosage: 90/8 MG, 1 TABLET IN MORNING
     Route: 048
     Dates: start: 20210912, end: 20210918
  2. CONTRAVE [Suspect]
     Active Substance: BUPROPION HYDROCHLORIDE\NALTREXONE HYDROCHLORIDE
     Dosage: 90/8 MG, 1 TABLET IN MORNING, 1 TABLET IN EVENING
     Route: 048
     Dates: start: 20210919, end: 20210925
  3. CONTRAVE [Suspect]
     Active Substance: BUPROPION HYDROCHLORIDE\NALTREXONE HYDROCHLORIDE
     Dosage: 90/8 MG, 2 TABLETS IN MORNING, 1 TABLET IN EVENING
     Route: 048
     Dates: start: 20210926, end: 20211002
  4. CONTRAVE [Suspect]
     Active Substance: BUPROPION HYDROCHLORIDE\NALTREXONE HYDROCHLORIDE
     Dosage: 90/8 MG, 2 TABLETS IN MORNING, 2 TABLETS IN EVENING
     Route: 048
     Dates: start: 20211003, end: 20220327
  5. CONTRAVE [Suspect]
     Active Substance: BUPROPION HYDROCHLORIDE\NALTREXONE HYDROCHLORIDE
     Dosage: 90/8 MG, 1 TABLET IN MORNING, 1 TABLET IN EVENING (REDUCED)
     Route: 048
     Dates: start: 20220328, end: 20220331
  6. CONTRAVE [Suspect]
     Active Substance: BUPROPION HYDROCHLORIDE\NALTREXONE HYDROCHLORIDE
     Dosage: 90/8 MG, 2 TABLETS IN MORNING, 2 TABLETS IN EVENING
     Route: 048
     Dates: start: 20220401, end: 202208
  7. POTASSIUM [Suspect]
     Active Substance: POTASSIUM
     Indication: Mineral supplementation
     Dosage: UNK
     Route: 065
  8. VITAMIN D [Concomitant]
     Active Substance: VITAMIN D NOS
     Indication: Metabolic surgery
     Dosage: 1 DOSAGE FORMS, 1 IN 24 HR
     Route: 048
  9. VITAMIN B12 [Concomitant]
     Active Substance: CYANOCOBALAMIN
     Indication: Metabolic surgery
     Dosage: 1 DOSAGE FORMS, 1 IN 24 HR
     Route: 048
  10. ALEVE [Concomitant]
     Active Substance: NAPROXEN SODIUM
     Indication: Arthritis
     Dosage: 2 DOSAGE FORMS, 1 IN 24 HR
     Route: 048
  11. ADVIL [Concomitant]
     Active Substance: IBUPROFEN\IBUPROFEN SODIUM
     Indication: Arthritis
     Dosage: AS NEEDED (200 MG)
     Route: 048
  12. KIRKLAND SIGNATURE ACETAMINOPHEN [Concomitant]
     Indication: Arthritis
     Dosage: AS NEEDED
     Route: 048
  13. TRAZODONE [Concomitant]
     Active Substance: TRAZODONE HYDROCHLORIDE
     Indication: Sleep disorder
     Dosage: AS NEEDED
     Route: 048
  14. CALCIUM\VITAMIN D [Concomitant]
     Active Substance: CALCIUM\VITAMIN D
     Indication: Metabolic surgery
     Dosage: 1 DOSAGE FORMS, 1 IN 24 HR
     Route: 048
  15. SYMBICORT [Concomitant]
     Active Substance: BUDESONIDE\FORMOTEROL FUMARATE DIHYDRATE
     Indication: Asthma
     Dosage: AS NEEDED, SYMBICORT AEROSOL (1 IN 24 HR)
     Route: 050
  16. VITAMINS [Concomitant]
     Active Substance: VITAMINS
     Indication: Metabolic surgery
     Dosage: 1 DOSAGE FORMS, 1 IN 24 HR
     Route: 048
  17. PERINDOPRIL [Concomitant]
     Active Substance: PERINDOPRIL
     Indication: Hypertension
     Dosage: 2 MG,1 IN 1 D
     Route: 048
     Dates: start: 20211105
  18. BISOPROLOL [Concomitant]
     Active Substance: BISOPROLOL\BISOPROLOL FUMARATE
     Indication: Hypertension
     Dosage: 1 IN 1 D
     Route: 048
  19. BUMETANIDE [Concomitant]
     Active Substance: BUMETANIDE
     Indication: Hypertension
     Dosage: (1 IN 1 D)
     Route: 048
  20. ENTRESTO [Concomitant]
     Active Substance: SACUBITRIL\VALSARTAN
     Indication: Hypertension
     Dosage: (1 IN 1 D)
     Route: 048
  21. DAPAGLIFLOZIN [Concomitant]
     Active Substance: DAPAGLIFLOZIN
     Indication: Diabetes mellitus
     Dosage: (1 IN 1 D)
     Route: 048
  22. DULOXETINE [Concomitant]
     Active Substance: DULOXETINE
     Indication: Anxiety
     Dosage: (1 IN 1 D)
     Route: 048
  23. ROSUVASTATIN [Concomitant]
     Active Substance: ROSUVASTATIN\ROSUVASTATIN CALCIUM
     Indication: Blood cholesterol
     Dosage: (1 IN 1 D)
     Route: 048
  24. SPIRONOLACTONE [Concomitant]
     Active Substance: SPIRONOLACTONE
     Indication: Product used for unknown indication
     Dosage: UNK
  25. METOLAZONE [Concomitant]
     Active Substance: METOLAZONE
     Indication: Product used for unknown indication
     Dosage: UNK
  26. VITAMINS NOS [Concomitant]
     Active Substance: VITAMINS
     Indication: Product used for unknown indication
     Dosage: UNK
  27. PROBIOTICS NOS [Concomitant]
     Active Substance: PROBIOTICS NOS
     Indication: Product used for unknown indication
     Dosage: UNK
  28. MAGNESIUM [Concomitant]
     Active Substance: MAGNESIUM
     Indication: Product used for unknown indication
     Dosage: UNK
  29. CALCIUM [Concomitant]
     Active Substance: CALCIUM
     Indication: Product used for unknown indication
     Dosage: UNK
  30. BORAGE OIL [Concomitant]
     Active Substance: BORAGE OIL
     Indication: Product used for unknown indication
     Dosage: UNK

REACTIONS (22)
  - Hypotension [Recovered/Resolved]
  - Cardiac failure congestive [Not Recovered/Not Resolved]
  - Food aversion [Not Recovered/Not Resolved]
  - Withdrawal syndrome [Recovered/Resolved]
  - Umbilical hernia [Not Recovered/Not Resolved]
  - Condition aggravated [Not Recovered/Not Resolved]
  - Peripheral swelling [Recovered/Resolved]
  - Polydipsia [Unknown]
  - Gait disturbance [Unknown]
  - Plantar fasciitis [Recovering/Resolving]
  - Disease recurrence [Recovering/Resolving]
  - Glomerular filtration rate decreased [Unknown]
  - Muscle spasms [Not Recovered/Not Resolved]
  - Arthralgia [Not Recovered/Not Resolved]
  - Dry mouth [Not Recovered/Not Resolved]
  - Nausea [Not Recovered/Not Resolved]
  - Constipation [Not Recovered/Not Resolved]
  - Diarrhoea [Recovered/Resolved]
  - Intentional underdose [Unknown]
  - Product prescribing issue [Unknown]
  - Insurance issue [Unknown]
  - Therapy interrupted [Unknown]

NARRATIVE: CASE EVENT DATE: 20210101
